FAERS Safety Report 11181018 (Version 1)
Quarter: 2015Q2

REPORT INFORMATION
  Report Type: Spontaneous
  Country: US (occurrence: None)
  Receive Date: 20150610
  Receipt Date: 20150610
  Transmission Date: 20150821
  Serious: Yes (Hospitalization, Disabling)
  Sender: FDA-Public Use
  Company Number: None

PATIENT
  Age: 64 Year
  Sex: Male
  Weight: 86.18 kg

DRUGS (8)
  1. ACYCLOVIR. [Concomitant]
     Active Substance: ACYCLOVIR
  2. DAILY MULTI-VITAMIN [Concomitant]
  3. FINASTERIDE. [Concomitant]
     Active Substance: FINASTERIDE
  4. METROPROPOL [Concomitant]
  5. OCUVITE [Concomitant]
     Active Substance: VITAMINS
  6. SEPTRA [Concomitant]
     Active Substance: SULFAMETHOXAZOLE\TRIMETHOPRIM
  7. IVIG [Concomitant]
     Active Substance: HUMAN IMMUNOGLOBULIN G
  8. GAZYVA [Suspect]
     Active Substance: OBINUTUZUMAB
     Indication: CHRONIC LYMPHOCYTIC LEUKAEMIA
     Route: 042
     Dates: start: 20140811, end: 20140811

REACTIONS (2)
  - Memory impairment [None]
  - Pyrexia [None]

NARRATIVE: CASE EVENT DATE: 20140811
